FAERS Safety Report 17873920 (Version 1)
Quarter: 2020Q2

REPORT INFORMATION
  Report Type: Spontaneous
  Country: US (occurrence: US)
  Receive Date: 20200609
  Receipt Date: 20200609
  Transmission Date: 20200714
  Serious: Yes (Other)
  Sender: FDA-Public Use
  Company Number: US-CADILA HEALTHCARE LIMITED-US-ZYDUS-051635

PATIENT

DRUGS (6)
  1. KETAMINE [Suspect]
     Active Substance: KETAMINE
     Indication: PAIN
     Dosage: 100 MILLIGRAM
     Route: 065
  2. CLONIDINE. [Suspect]
     Active Substance: CLONIDINE
     Indication: DERMATITIS DIAPER
     Dosage: 2 MILLIGRAM
     Route: 065
  3. GABAPENTINE [Suspect]
     Active Substance: GABAPENTIN
     Indication: PAIN
     Dosage: 60 MILLIGRAM
     Route: 065
  4. LIDOCAINE. [Suspect]
     Active Substance: LIDOCAINE
     Indication: PAIN
     Dosage: 10 MILLIGRAM
     Route: 065
  5. MEFENAMIC ACID. [Suspect]
     Active Substance: MEFENAMIC ACID
     Indication: PAIN
     Dosage: 10 MILLIGRAM
     Route: 065
  6. IMIPRAMINE [Suspect]
     Active Substance: IMIPRAMINE
     Indication: PAIN
     Dosage: 30 MILLIGRAM
     Route: 065

REACTIONS (3)
  - Miosis [Unknown]
  - Loss of consciousness [Unknown]
  - Hyporeflexia [Unknown]
